FAERS Safety Report 5731082-2 (Version None)
Quarter: 2008Q2

REPORT INFORMATION
  Report Type: 
  Country: None (occurrence: None)
  Receive Date: 20080505
  Receipt Date: 20080425
  Transmission Date: 20081010
  Serious: Yes (Death)
  Sender: FDA-Public Use
  Company Number: SPV1-2008-00930

PATIENT
  Age: 66 Year
  Sex: Female
  Weight: 80.3 kg

DRUGS (20)
  1. FOSRENOL [Suspect]
     Dosage: 500 MG, 1X/DAY: QD, ORAL
     Route: 048
  2. CLONIDINE [Concomitant]
  3. LEVOFLOXACIN [Concomitant]
  4. NOVOLIN (INSULIN) [Concomitant]
  5. ISOSORBIDE (ISOSORBIDE) [Concomitant]
  6. NEXIUM (ESOMEPRAZOLE SODIUM) [Concomitant]
  7. MODAFINIL [Concomitant]
  8. METOCLOPRAMIDE (METOCLOPRAMIDE) [Concomitant]
  9. LEXAPRO [Concomitant]
  10. NEPHROCAPS (ASCORBIC ACID, BIOTIN, CYANOCOBALAMIN, FOLIC ACID, NICOTIN [Concomitant]
  11. ATENOLOL [Concomitant]
  12. BUPROPION HCL [Concomitant]
  13. PIOGLITAZONE HCL [Concomitant]
  14. SEVELAMER (SEVELAMER) [Concomitant]
  15. SYNTHROID [Concomitant]
  16. MORPHINE [Concomitant]
  17. POTASSIUM (POTASSIUM) [Concomitant]
  18. HYDRAZALINE (HYDRALAZINE) [Concomitant]
  19. VANCOMYCIN [Concomitant]
  20. EZETIMIBE (EZEIMIBE) [Concomitant]

REACTIONS (1)
  - DEATH [None]
